FAERS Safety Report 6842501-2 (Version None)
Quarter: 2010Q3

REPORT INFORMATION
  Report Type: 
  Country: None (occurrence: None)
  Receive Date: 20100714
  Receipt Date: 20071010
  Transmission Date: 20110219
  Serious: No
  Sender: FDA-Public Use
  Company Number: US-PFIZER INC-2007063191

PATIENT
  Sex: Male
  Weight: 89.4 kg

DRUGS (1)
  1. CHANTIX [Suspect]
     Indication: SMOKING CESSATION THERAPY
     Dates: start: 20070728

REACTIONS (2)
  - MUSCLE SPASMS [None]
  - SENSORY DISTURBANCE [None]
